FAERS Safety Report 7482818-4 (Version None)
Quarter: 2011Q2

REPORT INFORMATION
  Report Type: 
  Country: None (occurrence: None)
  Receive Date: 20110516
  Receipt Date: 20110505
  Transmission Date: 20111010
  Serious: Yes (Other)
  Sender: FDA-Public Use
  Company Number: SG-BAYER-2011-038919

PATIENT

DRUGS (2)
  1. DICLOFENAC SODIUM [Suspect]
  2. CIPROFLOXACIN HCL [Suspect]

REACTIONS (1)
  - ANGIOEDEMA [None]
